FAERS Safety Report 11628509 (Version 2)
Quarter: 2015Q4

REPORT INFORMATION
  Report Type: Spontaneous
  Country: AU (occurrence: AU)
  Receive Date: 20151014
  Receipt Date: 20151028
  Transmission Date: 20160304
  Serious: Yes (Other)
  Sender: FDA-Public Use
  Company Number: AU-GILEAD-2015-0176779

PATIENT
  Age: 87 Year
  Sex: Female

DRUGS (2)
  1. TADALAFIL [Concomitant]
     Active Substance: TADALAFIL
     Dosage: 40 MG, QD
     Dates: start: 201509
  2. AMBRISENTAN [Suspect]
     Active Substance: AMBRISENTAN
     Indication: PULMONARY ARTERIAL HYPERTENSION
     Dosage: 10 MG, QD
     Route: 065
     Dates: start: 201208

REACTIONS (3)
  - Pulmonary hypertension [Not Recovered/Not Resolved]
  - Condition aggravated [Not Recovered/Not Resolved]
  - Mobility decreased [Not Recovered/Not Resolved]

NARRATIVE: CASE EVENT DATE: 20151009
